FAERS Safety Report 4384406-5 (Version None)
Quarter: 2004Q2

REPORT INFORMATION
  Report Type: 
  Country: None (occurrence: None)
  Receive Date: 20040624
  Receipt Date: 20040611
  Transmission Date: 20050107
  Serious: Yes (Other)
  Sender: FDA-Public Use
  Company Number: US-GLAXOSMITHKLINE-A0514422A

PATIENT
  Age: 30 Year
  Sex: Female
  Weight: 100.2 kg

DRUGS (3)
  1. ALOSETRON [Suspect]
     Dosage: 1MG TWICE PER DAY
     Route: 048
     Dates: start: 20040601, end: 20040606
  2. TYLENOL [Concomitant]
     Indication: HEADACHE
     Dosage: 325MG AS REQUIRED
     Route: 048
  3. PAMPRIN TAB [Concomitant]
     Route: 048

REACTIONS (13)
  - ABDOMINAL PAIN [None]
  - COLITIS [None]
  - CONSTIPATION [None]
  - DECREASED APPETITE [None]
  - ENTEROCOLITIS HAEMORRHAGIC [None]
  - ERYTHEMA [None]
  - FAECES HARD [None]
  - FATIGUE [None]
  - HAEMATOCHEZIA [None]
  - HAEMORRHOIDS [None]
  - NAUSEA [None]
  - OEDEMA [None]
  - PROCTALGIA [None]
